FAERS Safety Report 6656185-X (Version None)
Quarter: 2010Q1

REPORT INFORMATION
  Report Type: 
  Country: None (occurrence: None)
  Receive Date: 20100326
  Receipt Date: 20100326
  Transmission Date: 20100710
  Serious: Yes (Life-Threatening)
  Sender: FDA-Public Use
  Company Number: None

PATIENT
  Age: 44 Year
  Sex: Male
  Weight: 49.9 kg

DRUGS (2)
  1. LEVAQUIN [Suspect]
     Indication: INFECTION
     Dosage: 750MG Q24H IV
     Route: 042
     Dates: start: 20100319, end: 20100320
  2. LEVAQUIN [Suspect]
     Indication: INTERVERTEBRAL DISCITIS
     Dosage: 750MG Q24H IV
     Route: 042
     Dates: start: 20100319, end: 20100320

REACTIONS (1)
  - TORSADE DE POINTES [None]
